FAERS Safety Report 9373892 (Version 1)
Quarter: 2013Q2

REPORT INFORMATION
  Report Type: Spontaneous
  Country: JP (occurrence: JP)
  Receive Date: 20130628
  Receipt Date: 20130628
  Transmission Date: 20140414
  Serious: Yes (Hospitalization, Other)
  Sender: FDA-Public Use
  Company Number: JP-B.I. PHARMACEUTICALS,INC./RIDGEFIELD-2013-BI-18682GD

PATIENT
  Age: 51 Year
  Sex: Male

DRUGS (2)
  1. PRADAXA [Suspect]
     Indication: ATRIAL FIBRILLATION
  2. PROTON PUMP INHIBITOR [Concomitant]
     Indication: DYSPEPSIA

REACTIONS (6)
  - Mallory-Weiss syndrome [Unknown]
  - Hypotension [Unknown]
  - Gastrointestinal haemorrhage [Recovered/Resolved]
  - Haematemesis [Recovered/Resolved]
  - Oesophagitis [Unknown]
  - Vomiting [Unknown]
